FAERS Safety Report 9995754 (Version 1)
Quarter: 2014Q1

REPORT INFORMATION
  Report Type: Spontaneous
  Country: US (occurrence: None)
  Receive Date: 20140310
  Receipt Date: 20140310
  Transmission Date: 20141002
  Serious: Yes (Other)
  Sender: FDA-Public Use
  Company Number: None

PATIENT
  Age: 53 Year
  Sex: 0

DRUGS (1)
  1. CYMBALTA [Suspect]

REACTIONS (3)
  - Contusion [None]
  - Abdominal pain [None]
  - Pain [None]
